FAERS Safety Report 12504490 (Version 2)
Quarter: 2016Q3

REPORT INFORMATION
  Report Type: Report from Study
  Country: BR (occurrence: BR)
  Receive Date: 20160628
  Receipt Date: 20160725
  Transmission Date: 20161109
  Serious: Yes (Other)
  Sender: FDA-Public Use
  Company Number: PHHY2015BR088953

PATIENT
  Age: 34 Year
  Sex: Female
  Weight: 60 kg

DRUGS (1)
  1. GILENYA [Suspect]
     Active Substance: FINGOLIMOD HYDROCHLORIDE
     Indication: MULTIPLE SCLEROSIS
     Dosage: 0.5 MG, QD
     Route: 048
     Dates: start: 201407

REACTIONS (27)
  - Eye injury [Recovering/Resolving]
  - Headache [Not Recovered/Not Resolved]
  - Psychotic disorder [Not Recovered/Not Resolved]
  - Anxiety [Not Recovered/Not Resolved]
  - Musculoskeletal disorder [Recovered/Resolved]
  - Excoriation [Recovered/Resolved]
  - Bipolar disorder [Not Recovered/Not Resolved]
  - Apathy [Not Recovered/Not Resolved]
  - Muscular weakness [Recovered/Resolved]
  - Eye discharge [Recovered/Resolved]
  - Insomnia [Not Recovered/Not Resolved]
  - Hordeolum [Recovered/Resolved]
  - Depression [Not Recovered/Not Resolved]
  - Depressed mood [Not Recovered/Not Resolved]
  - Optic neuritis [Recovered/Resolved with Sequelae]
  - Central nervous system lesion [Recovered/Resolved]
  - Ocular hyperaemia [Recovered/Resolved]
  - Mood altered [Not Recovered/Not Resolved]
  - Eye pain [Not Recovered/Not Resolved]
  - Cough [Not Recovered/Not Resolved]
  - Visual impairment [Unknown]
  - Alopecia [Not Recovered/Not Resolved]
  - Fall [Recovered/Resolved]
  - Decreased appetite [Not Recovered/Not Resolved]
  - Vision blurred [Recovered/Resolved with Sequelae]
  - Multiple sclerosis relapse [Recovered/Resolved]
  - Lymphocyte count decreased [Unknown]

NARRATIVE: CASE EVENT DATE: 2014
